FAERS Safety Report 5015550-7 (Version None)
Quarter: 2006Q2

REPORT INFORMATION
  Report Type: 
  Country: None (occurrence: None)
  Receive Date: 20060601
  Receipt Date: 20060523
  Transmission Date: 20061013
  Serious: Yes (Hospitalization, Other)
  Sender: FDA-Public Use
  Company Number: BE-JNJFOC-20060505389

PATIENT
  Age: 81 Year
  Sex: Female

DRUGS (20)
  1. REMICADE [Suspect]
     Route: 042
  2. LEDERTREXATE [Concomitant]
     Route: 048
  3. LEDERTREXATE [Concomitant]
     Indication: RHEUMATOID ARTHRITIS
     Route: 048
  4. HUMIRA [Concomitant]
     Indication: RHEUMATOID ARTHRITIS
     Route: 058
  5. NIZORAL [Concomitant]
     Indication: SEBORRHOEA
     Route: 065
  6. CHOROHEXIDINE [Concomitant]
     Route: 065
  7. FOSAMAX [Concomitant]
     Dosage: FASTING
     Route: 065
  8. EMCONCOR MITIS [Concomitant]
     Dosage: 2 X 1/2 A TABLET A DAY
     Route: 065
  9. ELVORINE [Concomitant]
     Dosage: NOT ON THE DAY OF METHOTREXATE
     Route: 065
  10. DOC LORAMET [Concomitant]
     Dosage: ONE TABLET IN THE EVENING
     Route: 065
  11. COVERSYL [Concomitant]
     Dosage: 1/2 A TABLET IN THE EVENING
     Route: 065
  12. D-CURE [Concomitant]
     Dosage: ONE VIAL A MONTH.
     Route: 048
  13. FRUBIASE CALCIUM [Concomitant]
     Dosage: ONE TABLET BEFORE SUPPER.
     Route: 065
  14. HYLO CORNOD [Concomitant]
     Route: 047
  15. NOZINAN [Concomitant]
     Dosage: 40MG/ML VIAL- 6 DROPS IN THE EVENING.
     Route: 065
  16. NEUROBION [Concomitant]
     Route: 030
  17. NEUROBION [Concomitant]
     Route: 030
  18. NEUROBION [Concomitant]
     Dosage: CYANCOBALAMINE 1MG, PYRIDOXINE HORHYDRATE 100MG, THIAMINE CHLORHYDRATE 100MG/3ML.
     Route: 030
  19. FELDENE [Concomitant]
     Dosage: EVENING
     Route: 065
  20. LEDERTREXATE [Concomitant]
     Dosage: STOPPED IN JUN-2002
     Route: 030

REACTIONS (1)
  - T-CELL LYMPHOMA [None]
